FAERS Safety Report 20385921 (Version 1)
Quarter: 2022Q1

REPORT INFORMATION
  Report Type: Spontaneous
  Country: US (occurrence: US)
  Receive Date: 20220127
  Receipt Date: 20220127
  Transmission Date: 20220423
  Serious: Yes (Other)
  Sender: FDA-Public Use
  Company Number: US-ALLERGAN-2131148US

PATIENT
  Age: 45 Year
  Sex: Female

DRUGS (1)
  1. BOTOX [Suspect]
     Active Substance: ONABOTULINUMTOXINA
     Indication: Spasmodic dysphonia
     Dosage: UNK UNK, SINGLE
     Dates: start: 20210621, end: 20210621

REACTIONS (2)
  - Dysphagia [Not Recovered/Not Resolved]
  - Oesophageal dilation procedure [Unknown]

NARRATIVE: CASE EVENT DATE: 20210621
